FAERS Safety Report 8764318 (Version 4)
Quarter: 2012Q4

REPORT INFORMATION
  Report Type: 
  Country: US (occurrence: US)
  Receive Date: 20120831
  Receipt Date: 20121030
  Transmission Date: 20130627
  Serious: Yes (Hospitalization)
  Sender: FDA-Public Use
  Company Number: US-ALEXION PHARMACEUTICALS INC.-A201201586

PATIENT
  Age: 69 Year
  Sex: Male
  Weight: 93 kg

DRUGS (21)
  1. SOLIRIS 300MG [Suspect]
     Indication: PAROXYSMAL NOCTURNAL HAEMOGLOBINURIA
     Dosage: 900 mg, q2w
     Route: 042
     Dates: start: 201107
  2. JAKAFI [Suspect]
     Indication: ANAEMIA
     Dosage: 20 mg, bid
  3. JAKAFI [Suspect]
     Indication: MYELOFIBROSIS
  4. JAKAFI [Suspect]
     Indication: MYELOID METAPLASIA
  5. ALLOPURINOL [Concomitant]
     Indication: GOUT
     Dosage: 300 mg, UNK
     Route: 048
     Dates: start: 20120628
  6. ALLOPURINOL [Concomitant]
     Dosage: 100 mg, UNK
     Route: 048
  7. LASIX [Concomitant]
     Dosage: 40 mg, UNK
     Route: 048
     Dates: start: 20120628
  8. TEMAZEPAM [Concomitant]
     Dosage: 15 mg, UNK
     Route: 048
     Dates: start: 20120628
  9. BENTYL [Concomitant]
     Dosage: 20 mg, qd
     Route: 048
     Dates: start: 20120827
  10. EMLA [Concomitant]
     Dosage: 2.5 % topical cream, prn
     Route: 061
     Dates: start: 20120605
  11. PROCRIT [Concomitant]
     Dosage: 40000 ut/mL, qw
     Route: 058
     Dates: start: 20120614
  12. PROCRIT [Concomitant]
     Dosage: 20000 ut/mL, qw
     Route: 058
     Dates: start: 20120614
  13. ANDROGEL [Concomitant]
     Dosage: 50 mg/5g (1%), UNK
     Route: 062
  14. FLOMAX [Concomitant]
     Dosage: 0.4 mg, UNK
     Route: 048
  15. SYNTHROID [Concomitant]
     Dosage: 50 mcg, UNK
     Route: 048
  16. JANUVIA [Concomitant]
     Indication: DIABETES MELLITUS
     Dosage: 50 mg, UNK
     Route: 048
  17. JANUVIA [Concomitant]
     Indication: NEUROPATHY PERIPHERAL
  18. ACTOS [Concomitant]
     Dosage: 15 mg, UNK
     Route: 048
  19. COZAAR [Concomitant]
     Dosage: 50 mg, UNK
     Route: 048
  20. DANAZOL [Concomitant]
     Indication: ANAEMIA
     Dosage: 600 mg, qd
     Route: 048
  21. EXJADE [Concomitant]
     Indication: IRON OVERLOAD

REACTIONS (8)
  - Staphylococcal sepsis [Recovering/Resolving]
  - Clostridium difficile colitis [Recovering/Resolving]
  - Leukocytosis [Not Recovered/Not Resolved]
  - Anaemia [Not Recovered/Not Resolved]
  - Skin lesion [Unknown]
  - Ecchymosis [Unknown]
  - Splenomegaly [Recovering/Resolving]
  - Blood iron decreased [Unknown]
